FAERS Safety Report 8805531 (Version 4)
Quarter: 2016Q4

REPORT INFORMATION
  Report Type: Spontaneous
  Country: US (occurrence: US)
  Receive Date: 20120924
  Receipt Date: 20161115
  Transmission Date: 20170207
  Serious: Yes (Hospitalization)
  Sender: FDA-Public Use
  Company Number: US-TEVA-359633USA

PATIENT
  Sex: Male

DRUGS (1)
  1. KETOCONAZOLE. [Suspect]
     Active Substance: KETOCONAZOLE
     Indication: FUNGAL SKIN INFECTION
     Dosage: 200 MG BID X 7 DAYS

REACTIONS (6)
  - Mania [Unknown]
  - Depression [Unknown]
  - Cardiac disorder [Unknown]
  - Abnormal behaviour [Unknown]
  - Liver function test abnormal [Unknown]
  - Mental disorder [Unknown]
